FAERS Safety Report 5881445-X (Version None)
Quarter: 2008Q3

REPORT INFORMATION
  Report Type: 
  Country: None (occurrence: None)
  Receive Date: 20080912
  Receipt Date: 20080702
  Transmission Date: 20090109
  Serious: No
  Sender: FDA-Public Use
  Company Number: US-ABBOTT-08P-163-0460333-00

PATIENT
  Age: 16 Year

DRUGS (4)
  1. HUMIRA [Suspect]
     Indication: JUVENILE ARTHRITIS
     Dates: start: 20060101
  2. HUMIRA [Suspect]
     Indication: POLYARTHRITIS
     Dates: start: 20030101, end: 20050101
  3. METHOTREXATE [Concomitant]
     Indication: JUVENILE ARTHRITIS
  4. METHOTREXATE [Concomitant]
     Indication: POLYARTHRITIS

REACTIONS (1)
  - TREMOR [None]
